FAERS Safety Report 13534933 (Version 2)
Quarter: 2017Q4

REPORT INFORMATION
  Report Type: Spontaneous
  Country: US (occurrence: US)
  Receive Date: 20170511
  Receipt Date: 20171113
  Transmission Date: 20180320
  Serious: Yes (Death, Hospitalization, Other)
  Sender: FDA-Public Use
  Company Number: US-TEVA-767006USA

PATIENT
  Age: 70 Year
  Sex: Male
  Weight: 89.8 kg

DRUGS (31)
  1. DIAMOX SEQUELS [Suspect]
     Active Substance: ACETAZOLAMIDE
     Indication: GLAUCOMA
     Route: 065
     Dates: end: 20170208
  2. AVODART [Concomitant]
     Active Substance: DUTASTERIDE
  3. GLYCOLAX [Concomitant]
     Active Substance: POLYETHYLENE GLYCOL 3350
  4. KLOR-CON [Concomitant]
     Active Substance: POTASSIUM CHLORIDE
  5. ASPIRIN. [Concomitant]
     Active Substance: ASPIRIN
  6. LIORESAL [Concomitant]
     Active Substance: BACLOFEN
  7. AZOPT [Concomitant]
     Active Substance: BRINZOLAMIDE
  8. EFUDEX [Concomitant]
     Active Substance: FLUOROURACIL
     Dates: start: 20170121
  9. PILOCARPINE. [Concomitant]
     Active Substance: PILOCARPINE
  10. ADVAIR HFA [Concomitant]
     Active Substance: FLUTICASONE PROPIONATE\SALMETEROL XINAFOATE
     Dosage: 100/50 MCG
  11. CYMBALTA [Concomitant]
     Active Substance: DULOXETINE HYDROCHLORIDE
  12. LASIX [Concomitant]
     Active Substance: FUROSEMIDE
  13. MIRAPEX [Concomitant]
     Active Substance: PRAMIPEXOLE DIHYDROCHLORIDE
  14. FLOMAX [Concomitant]
     Active Substance: TAMSULOSIN HYDROCHLORIDE
  15. HEPSERA [Concomitant]
     Active Substance: ADEFOVIR DIPIVOXIL
  16. VENTOLIN HFA [Concomitant]
     Active Substance: ALBUTEROL SULFATE
  17. BROVANA [Concomitant]
     Active Substance: ARFORMOTEROL TARTRATE
  18. COMBIGAN [Concomitant]
     Active Substance: BRIMONIDINE TARTRATE\TIMOLOL MALEATE
  19. VITAMIN D2 [Concomitant]
     Active Substance: ERGOCALCIFEROL
  20. LUMIGAN [Concomitant]
     Active Substance: BIMATOPROST
  21. MULTIVITAMIN [Concomitant]
     Active Substance: VITAMINS
  22. AGRYLIN [Concomitant]
     Active Substance: ANAGRELIDE HYDROCHLORIDE
  23. JAKAFI [Concomitant]
     Active Substance: RUXOLITINIB
     Indication: POLYCYTHAEMIA VERA
     Dosage: 20 MILLIGRAM DAILY;
     Route: 048
     Dates: start: 20170123
  24. XALATAN [Concomitant]
     Active Substance: LATANOPROST
  25. SYNTHROID [Concomitant]
     Active Substance: LEVOTHYROXINE SODIUM
  26. SILVADENE [Concomitant]
     Active Substance: SILVER SULFADIAZINE
  27. VITAMIN E [Concomitant]
     Active Substance: .ALPHA.-TOCOPHEROL
  28. TYLENOL [Concomitant]
     Active Substance: ACETAMINOPHEN
  29. PULMICORT TURBUHALER [Concomitant]
     Active Substance: BUDESONIDE
  30. NEXIUM [Concomitant]
     Active Substance: ESOMEPRAZOLE MAGNESIUM
  31. NEURONTIN [Concomitant]
     Active Substance: GABAPENTIN

REACTIONS (3)
  - Metabolic encephalopathy [Unknown]
  - Metabolic acidosis [Unknown]
  - Asthenia [Not Recovered/Not Resolved]

NARRATIVE: CASE EVENT DATE: 20170208
